FAERS Safety Report 8290734-3 (Version None)
Quarter: 2012Q2

REPORT INFORMATION
  Report Type: 
  Country: None (occurrence: None)
  Receive Date: 20120417
  Receipt Date: 20110303
  Transmission Date: 20120825
  Serious: No
  Sender: FDA-Public Use
  Company Number: US-ASTRAZENECA-2011SE12018

PATIENT
  Age: 60 Year
  Sex: Female
  Weight: 79.4 kg

DRUGS (5)
  1. CALCIUM CARBONATE [Concomitant]
  2. WOMENS MULTIVITAMIN [Concomitant]
  3. VITAMIN D [Concomitant]
  4. NEXIUM [Suspect]
     Route: 048
     Dates: end: 20101201
  5. NEXIUM [Suspect]
     Route: 048

REACTIONS (4)
  - GAIT DISTURBANCE [None]
  - GASTROOESOPHAGEAL REFLUX DISEASE [None]
  - JOINT STIFFNESS [None]
  - ARTHRALGIA [None]
